FAERS Safety Report 6413114-1 (Version None)
Quarter: 2009Q4

REPORT INFORMATION
  Report Type: 
  Country: None (occurrence: None)
  Receive Date: 20091022
  Receipt Date: 20091022
  Transmission Date: 20100525
  Serious: No
  Sender: FDA-Public Use
  Company Number: None

PATIENT
  Age: 66 Year
  Sex: Female
  Weight: 65.7716 kg

DRUGS (1)
  1. TRICOR [Suspect]
     Indication: HYPERLIPIDAEMIA
     Dosage: 48 MG 1 - DAILY MOUTH
     Route: 048
     Dates: start: 20090501, end: 20090901

REACTIONS (3)
  - DIZZINESS [None]
  - FATIGUE [None]
  - GALLBLADDER DISORDER [None]
